FAERS Safety Report 24793341 (Version 1)
Quarter: 2024Q4

REPORT INFORMATION
  Report Type: Spontaneous
  Country: PT (occurrence: PT)
  Receive Date: 20241231
  Receipt Date: 20241231
  Transmission Date: 20250114
  Serious: Yes (Other)
  Sender: AUROBINDO
  Company Number: PT-AUROBINDO-AUR-APL-2024-063543

PATIENT
  Age: 70 Year
  Sex: Female
  Weight: 65 kg

DRUGS (3)
  1. LIDOCAINE [Suspect]
     Active Substance: LIDOCAINE
     Indication: Local anaesthesia
     Dosage: 400 MILLIGRAM (ADMINISTERED IN FRACTIONED DOSES IN THE FEMORAL REGION)
     Route: 058
  2. FENTANYL [Concomitant]
     Active Substance: FENTANYL
     Indication: Product used for unknown indication
     Dosage: UNK
     Route: 065
  3. DROPERIDOL [Concomitant]
     Active Substance: DROPERIDOL
     Indication: Product used for unknown indication
     Dosage: UNK
     Route: 065

REACTIONS (5)
  - Local anaesthetic systemic toxicity [Recovering/Resolving]
  - Altered state of consciousness [Recovering/Resolving]
  - Atrial fibrillation [Recovering/Resolving]
  - Disorientation [Recovering/Resolving]
  - Agitation [Recovering/Resolving]
